FAERS Safety Report 11540690 (Version 1)
Quarter: 2015Q3

REPORT INFORMATION
  Report Type: Spontaneous
  Country: US (occurrence: US)
  Receive Date: 20150923
  Receipt Date: 20150923
  Transmission Date: 20151125
  Serious: No
  Sender: FDA-Public Use
  Company Number: US-GLAXOSMITHKLINE-US2015GSK094166

PATIENT
  Sex: Female

DRUGS (1)
  1. RYTHMOL [Suspect]
     Active Substance: PROPAFENONE HYDROCHLORIDE

REACTIONS (4)
  - Dyspnoea [Unknown]
  - Malaise [Unknown]
  - Inability to afford medication [Unknown]
  - Blood pressure fluctuation [Unknown]
